FAERS Safety Report 9924580 (Version 3)
Quarter: 2014Q2

REPORT INFORMATION
  Report Type: Spontaneous
  Country: US (occurrence: US)
  Receive Date: 20140226
  Receipt Date: 20140521
  Transmission Date: 20141212
  Serious: No
  Sender: FDA-Public Use
  Company Number: US-PFIZER INC-2014052106

PATIENT
  Age: 71 Year
  Sex: Male

DRUGS (34)
  1. SUTENT [Suspect]
     Indication: RENAL CELL CARCINOMA
     Dosage: 50 MG, CYCLIC (Q DAY X 4 WEEKS, OFF 2 WKS)
     Route: 048
     Dates: start: 20140205
  2. PROMETHAZINE [Concomitant]
     Dosage: 25 MG, AS NEEDED
     Dates: start: 20140115
  3. PROMETHAZINE [Concomitant]
     Dosage: UNK
     Dates: start: 20140130
  4. PROMETHAZINE [Concomitant]
     Dosage: UNK
     Dates: start: 20140221
  5. PROMETHAZINE [Concomitant]
     Dosage: UNK
     Dates: start: 20140314
  6. HYDROCHLOROTHIAZIDE [Concomitant]
     Dosage: 12.5 MG (25MG 1/2 QD), 1X/DAY
     Dates: start: 20140115
  7. AMLODIPINE BESYLATE [Concomitant]
     Dosage: 10 MG, 2X/DAY ( 1 AM, 1/2 PM)
     Dates: start: 20140115
  8. AMLODIPINE BESYLATE [Concomitant]
     Dosage: 10 MG, 1X/DAY (1 AM)
     Dates: start: 20140130
  9. AMLODIPINE BESYLATE [Concomitant]
     Dosage: UNK
     Dates: start: 20140221
  10. ALTACE [Concomitant]
     Dosage: 1.25 MG, 1X/DAY
     Dates: start: 20140115
  11. ALTACE [Concomitant]
     Dosage: UNK
     Dates: start: 20140130
  12. ALTACE [Concomitant]
     Dosage: UNK
     Dates: start: 20140221
  13. ALTACE [Concomitant]
     Dosage: UNK
     Dates: start: 20140314
  14. CARVEDILOL [Concomitant]
     Dosage: 3.125 MG, 2X/DAY
     Dates: start: 20140115
  15. CARVEDILOL [Concomitant]
     Dosage: UNK
     Dates: start: 20140130
  16. NEXIUM [Concomitant]
     Dosage: 40 MG, 1X/DAY
     Dates: start: 20140115
  17. NEXIUM [Concomitant]
     Dosage: UNK, AS NEEDED
     Dates: start: 20140130
  18. NEXIUM [Concomitant]
     Dosage: UNK, AS NEEDED
     Dates: start: 20140221
  19. NEXIUM [Concomitant]
     Dosage: UNK, AS NEEDED
     Dates: start: 20140314
  20. ACETAMINOPHEN W/OXYCODONE [Concomitant]
     Dosage: OXYCODONE HYDROCHLORIDE 10/ PARACETAMOL 325, AS NEEDED
     Dates: start: 20140115
  21. ACETAMINOPHEN W/OXYCODONE [Concomitant]
     Dosage: UNK
     Dates: start: 20140130
  22. ACETAMINOPHEN W/OXYCODONE [Concomitant]
     Dosage: UNK
     Dates: start: 20140221
  23. ACETAMINOPHEN W/OXYCODONE [Concomitant]
     Dosage: UNK
     Dates: start: 20140314
  24. ASA [Concomitant]
     Dosage: 81 MG, 1X/DAY
     Dates: start: 20140115
  25. ASA [Concomitant]
     Dosage: UNK
     Dates: start: 20140130
  26. ASA [Concomitant]
     Dosage: UNK
     Dates: start: 20140221
  27. ASA [Concomitant]
     Dosage: UNK
     Dates: start: 20140314
  28. ATORVASTATIN [Concomitant]
     Dosage: 20 MG, AS NEEDED (AT BEDTIME)
     Dates: start: 20140115
  29. MECLIZINE [Concomitant]
     Dosage: 25 MG, 2X/DAY
     Dates: start: 20140221
  30. MECLIZINE [Concomitant]
     Dosage: UNK
     Dates: start: 20140314
  31. ZOFRAN [Concomitant]
     Dosage: 8 MG, UNK
     Dates: start: 20140221
  32. ZOFRAN [Concomitant]
     Dosage: UNK
     Dates: start: 20140314
  33. PROMETHAZINE VC [Concomitant]
  34. AMLODIPINE BESILATE/BENAZEPRIL HYDROCHLORIDE [Concomitant]

REACTIONS (3)
  - Nausea [Recovered/Resolved]
  - Vomiting [Unknown]
  - Thrombocytopenia [Unknown]
